FAERS Safety Report 6692436-3 (Version None)
Quarter: 2010Q2

REPORT INFORMATION
  Report Type: 
  Country: None (occurrence: None)
  Receive Date: 20100419
  Receipt Date: 20080418
  Transmission Date: 20101027
  Serious: Yes (Other)
  Sender: FDA-Public Use
  Company Number: US275527

PATIENT

DRUGS (3)
  1. ENBREL [Suspect]
     Indication: JUVENILE ARTHRITIS
     Dosage: SC
     Route: 058
     Dates: start: 20070101
  2. CORTICOSTEROID NOS [Suspect]
     Indication: JUVENILE ARTHRITIS
     Dosage: PO
     Route: 048
     Dates: start: 20070101
  3. METHOTREXATE [Suspect]
     Indication: JUVENILE ARTHRITIS
     Dates: start: 20070101

REACTIONS (2)
  - ACUTE LYMPHOCYTIC LEUKAEMIA [None]
  - SPLENOMEGALY [None]
